FAERS Safety Report 6245476-2 (Version None)
Quarter: 2009Q2

REPORT INFORMATION
  Report Type: 
  Country: None (occurrence: None)
  Receive Date: 20090625
  Receipt Date: 20090623
  Transmission Date: 20091009
  Serious: Yes (Life-Threatening, Other)
  Sender: FDA-Public Use
  Company Number: PHEH2009US06522

PATIENT
  Age: 82 Year
  Sex: Female

DRUGS (1)
  1. RECLAST [Suspect]
     Indication: OSTEOPOROSIS POSTMENOPAUSAL
     Dosage: 5 MG ONCE IN A YEAR
     Dates: start: 20090610

REACTIONS (3)
  - BLOOD CREATININE INCREASED [None]
  - HYPOTENSION [None]
  - RENAL FAILURE [None]
